FAERS Safety Report 6234894-4 (Version None)
Quarter: 2009Q2

REPORT INFORMATION
  Report Type: 
  Country: None (occurrence: None)
  Receive Date: 20090618
  Receipt Date: 20090608
  Transmission Date: 20091009
  Serious: Yes (Other)
  Sender: FDA-Public Use
  Company Number: JP-PFIZER INC-2009206498

PATIENT
  Age: 74 Year

DRUGS (6)
  1. CELECOX [Suspect]
     Indication: OSTEOARTHRITIS
     Dosage: 200 MG, 1X/DAY
     Route: 048
     Dates: start: 20090121, end: 20090308
  2. PLETAL [Suspect]
     Indication: PROPHYLAXIS
     Dosage: 100 MG, 1X/DAY
     Route: 048
     Dates: start: 20090121, end: 20090308
  3. CERCINE [Suspect]
     Dosage: 4 MG, 1X/DAY
     Dates: start: 20090121, end: 20090308
  4. ALDIOXA [Concomitant]
  5. DICLOFENAC SODIUM [Concomitant]
     Dosage: UNK TDER
     Dates: start: 20090121, end: 20090308
  6. HYALURONATE SODIUM [Concomitant]
     Dosage: TIUNK
     Dates: start: 20090121, end: 20090210

REACTIONS (1)
  - LIVER DISORDER [None]
